FAERS Safety Report 7469068-2 (Version None)
Quarter: 2011Q2

REPORT INFORMATION
  Report Type: 
  Country: None (occurrence: None)
  Receive Date: 20110429
  Receipt Date: 20110421
  Transmission Date: 20111010
  Serious: Yes (Hospitalization, Disabling)
  Sender: FDA-Public Use
  Company Number: 2011SP012262

PATIENT
  Age: 10 Year
  Sex: Male

DRUGS (3)
  1. PREGNYL [Suspect]
     Indication: CRYPTORCHISM
     Dosage: 750 IU; ONCE; IM
     Dates: start: 20020308, end: 20020308
  2. PREGNYL [Suspect]
     Indication: CRYPTORCHISM
     Dosage: 750 IU; ONCE; IM
     Dates: start: 20020320, end: 20020320
  3. PREGNYL [Suspect]
     Indication: CRYPTORCHISM
     Dosage: 750 IU; ONCE; IM
     Dates: start: 20020327, end: 20020327

REACTIONS (5)
  - OVERDOSE [None]
  - SPEECH DISORDER DEVELOPMENTAL [None]
  - DEVELOPMENTAL DELAY [None]
  - MENTAL RETARDATION [None]
  - RESTLESSNESS [None]
